FAERS Safety Report 20291406 (Version 2)
Quarter: 2022Q1

REPORT INFORMATION
  Report Type: Spontaneous
  Country: US (occurrence: US)
  Receive Date: 20220104
  Receipt Date: 20220303
  Transmission Date: 20220423
  Serious: No
  Sender: FDA-Public Use
  Company Number: US-PFIZER INC-202101035096

PATIENT
  Age: 36 Year
  Sex: Male

DRUGS (1)
  1. XELJANZ XR [Suspect]
     Active Substance: TOFACITINIB CITRATE
     Indication: Colitis ulcerative
     Dosage: 22 MG, 1X/DAY(22 MG BY MOUTH ONCE DAILY)
     Route: 048
     Dates: start: 202011

REACTIONS (3)
  - Off label use [Unknown]
  - Infrequent bowel movements [Unknown]
  - Abdominal discomfort [Unknown]
